FAERS Safety Report 6895574-5 (Version None)
Quarter: 2010Q3

REPORT INFORMATION
  Report Type: 
  Country: None (occurrence: None)
  Receive Date: 20100802
  Receipt Date: 20100728
  Transmission Date: 20110219
  Serious: Yes (Other)
  Sender: FDA-Public Use
  Company Number: PHHY2010BR49393

PATIENT
  Age: 41 Year

DRUGS (2)
  1. CYCLOSPORINE [Suspect]
     Indication: HEART TRANSPLANT
  2. AZATHIOPRINE [Concomitant]
     Indication: HEART TRANSPLANT

REACTIONS (6)
  - AORTIC DILATATION [None]
  - AORTIC SURGERY [None]
  - AORTIC VALVE INCOMPETENCE [None]
  - HEART TRANSPLANT REJECTION [None]
  - INTRACARDIAC THROMBUS [None]
  - LEFT VENTRICULAR DYSFUNCTION [None]
